FAERS Safety Report 24579699 (Version 1)
Quarter: 2024Q4

REPORT INFORMATION
  Report Type: Spontaneous
  Country: RU (occurrence: RU)
  Receive Date: 20241105
  Receipt Date: 20241105
  Transmission Date: 20250114
  Serious: Yes (Hospitalization)
  Sender: AMERICAN REGENT
  Company Number: RU-AMERICAN REGENT INC-2024004096

PATIENT
  Age: 15 Year
  Sex: Female
  Weight: 52 kg

DRUGS (1)
  1. FERINJECT [Suspect]
     Active Substance: FERRIC CARBOXYMALTOSE
     Indication: Blood loss anaemia
     Dosage: DILUTED 100 ML IN 0.9 PERCENT NACL (300 MG)
     Dates: start: 20241024, end: 20241024

REACTIONS (5)
  - Cutaneous tuberculosis [Recovering/Resolving]
  - Urticaria [Recovering/Resolving]
  - Erythema [Recovering/Resolving]
  - Rash [Recovering/Resolving]
  - Pruritus [Recovering/Resolving]

NARRATIVE: CASE EVENT DATE: 20241024
